FAERS Safety Report 6511240-X (Version None)
Quarter: 2009Q4

REPORT INFORMATION
  Report Type: 
  Country: None (occurrence: None)
  Receive Date: 20091222
  Receipt Date: 20090427
  Transmission Date: 20100525
  Serious: No
  Sender: FDA-Public Use
  Company Number: US-ASTRAZENECA-2009UW06846

PATIENT
  Age: 46 Year
  Sex: Male
  Weight: 83.9 kg

DRUGS (2)
  1. CRESTOR [Suspect]
     Route: 048
  2. LISINOPRIL [Concomitant]
     Indication: HYPERTENSION

REACTIONS (1)
  - INSOMNIA [None]
